FAERS Safety Report 23494460 (Version 1)
Quarter: 2024Q1

REPORT INFORMATION
  Report Type: Spontaneous
  Country: DE (occurrence: DE)
  Receive Date: 20240207
  Receipt Date: 20240207
  Transmission Date: 20240410
  Serious: Yes (Life-Threatening, Other)
  Sender: FDA-Public Use
  Company Number: DE-AMGEN-DEUSP2024021345

PATIENT

DRUGS (3)
  1. XGEVA [Suspect]
     Active Substance: DENOSUMAB
     Indication: Product used for unknown indication
     Dosage: 35 MILLIGRAM
     Route: 058
  2. CALCIUM [Concomitant]
     Active Substance: CALCIUM
     Dosage: 1000 MILLIGRAM, QD (DAY 7 TO DAY 28)
     Route: 065
  3. VITAMIN D [Concomitant]
     Active Substance: VITAMIN D NOS
     Dosage: 400 INTERNATIONAL UNIT, QD (DAY 7 TO DAY 28)

REACTIONS (44)
  - Infestation [Unknown]
  - Infection [Unknown]
  - Nervous system disorder [Unknown]
  - Musculoskeletal disorder [Unknown]
  - Connective tissue disorder [Unknown]
  - Headache [Unknown]
  - Appendicitis [Unknown]
  - Mantle cell lymphoma [Unknown]
  - Poisoning [Unknown]
  - COVID-19 [Unknown]
  - Nasopharyngitis [Unknown]
  - Rhinitis [Unknown]
  - Back pain [Unknown]
  - Arthralgia [Unknown]
  - Pain in extremity [Unknown]
  - Gastrointestinal disorder [Unknown]
  - Diarrhoea [Unknown]
  - Toothache [Unknown]
  - Abdominal pain [Unknown]
  - General physical condition abnormal [Unknown]
  - Administration site reaction [Unknown]
  - Fatigue [Unknown]
  - Chills [Unknown]
  - Respiratory disorder [Unknown]
  - Lung disorder [Unknown]
  - Mediastinal disorder [Unknown]
  - Cough [Unknown]
  - Oropharyngeal pain [Unknown]
  - Injury [Unknown]
  - Procedural complication [Unknown]
  - Ligament sprain [Unknown]
  - Metabolic disorder [Unknown]
  - Nutritional condition abnormal [Unknown]
  - Hypocalcaemia [Unknown]
  - Skin disorder [Unknown]
  - Erythema [Unknown]
  - Immune system disorder [Unknown]
  - Immunisation reaction [Unknown]
  - Psychiatric evaluation abnormal [Unknown]
  - Drug specific antibody present [Unknown]
  - Intervertebral disc protrusion [Unknown]
  - Alcohol abuse [Unknown]
  - Aspartate aminotransferase increased [Unknown]
  - Off label use [Unknown]
